FAERS Safety Report 23671734 (Version 1)
Quarter: 2024Q1

REPORT INFORMATION
  Report Type: Spontaneous
  Country: US (occurrence: US)
  Receive Date: 20240326
  Receipt Date: 20240326
  Transmission Date: 20240410
  Serious: No
  Sender: FDA-Public Use
  Company Number: US-Coherus Biosciences, Inc.-2024-COH-US000105

PATIENT

DRUGS (2)
  1. YUSIMRY [Suspect]
     Active Substance: ADALIMUMAB-AQVH
     Indication: Spondyloarthropathy
     Dosage: 40 MG, Q2WEEKS
     Route: 058
     Dates: start: 202401
  2. YUSIMRY [Suspect]
     Active Substance: ADALIMUMAB-AQVH
     Dosage: 40 MG, Q2WEEKS
     Route: 058
     Dates: start: 20240219

REACTIONS (4)
  - Injection site irritation [Recovered/Resolved]
  - Injection site papule [Recovered/Resolved]
  - Accidental exposure to product [Unknown]
  - Product quality issue [Unknown]

NARRATIVE: CASE EVENT DATE: 20240101
